FAERS Safety Report 6946968-0 (Version None)
Quarter: 2010Q3

REPORT INFORMATION
  Report Type: 
  Country: None (occurrence: None)
  Receive Date: 20100825
  Receipt Date: 20100820
  Transmission Date: 20110219
  Serious: Yes (Hospitalization)
  Sender: FDA-Public Use
  Company Number: 1000015548

PATIENT
  Age: 41 Year
  Sex: Female

DRUGS (5)
  1. PROPRANOLOL HYDROCHLORIDE [Suspect]
     Dosage: 15 DF,ORAL
     Route: 048
  2. CLONAZEPAM [Suspect]
     Dosage: 112 DF, ORAL
     Route: 048
  3. OXAZEPAM [Suspect]
     Dosage: 56 DF, ORAL
     Route: 048
  4. FLUPENTHIXOL [Suspect]
     Dosage: 56 DF, ORAL
     Route: 048
  5. VALPROATE SODIUM [Suspect]
     Dosage: 50 DF, ORAL
     Route: 048

REACTIONS (7)
  - BLOOD PRESSURE DECREASED [None]
  - BLOOD PRESSURE FLUCTUATION [None]
  - BRADYCARDIA [None]
  - CONSCIOUSNESS FLUCTUATING [None]
  - HYPERAMMONAEMIA [None]
  - MULTIPLE DRUG OVERDOSE [None]
  - THERAPEUTIC AGENT TOXICITY [None]
